FAERS Safety Report 10685573 (Version 3)
Quarter: 2015Q1

REPORT INFORMATION
  Report Type: Spontaneous
  Country: US (occurrence: US)
  Receive Date: 20141231
  Receipt Date: 20150313
  Transmission Date: 20150720
  Serious: Yes (Hospitalization, Other)
  Sender: FDA-Public Use
  Company Number: US-BAYER-2014-191306

PATIENT
  Age: 29 Year
  Sex: Female
  Weight: 156.1 kg

DRUGS (1)
  1. MIRENA [Suspect]
     Active Substance: LEVONORGESTREL
     Indication: CONTRACEPTION
     Dosage: 20 MCG/24HR, CONT
     Route: 015
     Dates: start: 20070409, end: 20120405

REACTIONS (6)
  - Injury [None]
  - Device breakage [None]
  - Pain [None]
  - Urinary tract infection [None]
  - Embedded device [None]
  - Dyspareunia [None]

NARRATIVE: CASE EVENT DATE: 201110
